FAERS Safety Report 7110449-4 (Version None)
Quarter: 2010Q4

REPORT INFORMATION
  Report Type: 
  Country: None (occurrence: None)
  Receive Date: 20101116
  Receipt Date: 20101116
  Transmission Date: 20110411
  Serious: Yes (Other)
  Sender: FDA-Public Use
  Company Number: None

PATIENT
  Age: 48 Year
  Sex: Female
  Weight: 70.3075 kg

DRUGS (1)
  1. VALACYCLOVIR [Suspect]
     Indication: ANTIVIRAL TREATMENT
     Dosage: 500 MG 2 X DAY
     Dates: start: 20100712, end: 20101001

REACTIONS (8)
  - EPSTEIN-BARR VIRUS INFECTION [None]
  - HERPES VIRUS INFECTION [None]
  - HUMAN HERPESVIRUS 6 INFECTION [None]
  - MALAISE [None]
  - PRODUCT SUBSTITUTION ISSUE [None]
  - UNEVALUABLE EVENT [None]
  - VARICELLA [None]
  - VIRAL LOAD INCREASED [None]
